FAERS Safety Report 9134889 (Version 2)
Quarter: 2013Q1

REPORT INFORMATION
  Report Type: Spontaneous
  Country: JP (occurrence: JP)
  Receive Date: 20130304
  Receipt Date: 20130307
  Transmission Date: 20140127
  Serious: Yes (Other)
  Sender: FDA-Public Use
  Company Number: JP-009507513-1302JPN013335

PATIENT
  Age: 78 Year
  Sex: Female

DRUGS (15)
  1. GASTER [Suspect]
     Indication: ABDOMINAL DISCOMFORT
     Dosage: DAILY DOSAGE: 40 MG
     Route: 048
     Dates: start: 20130218
  2. HALFDIGOXIN [Concomitant]
     Indication: ANGINA PECTORIS
  3. FRANDOL [Concomitant]
     Indication: ANGINA PECTORIS
  4. D-ALPHA [Concomitant]
  5. METGLUCO [Concomitant]
  6. JANUVIA TABLETS 25MG [Concomitant]
  7. AMARYL [Concomitant]
  8. PLAVIX [Concomitant]
  9. BAYASPIRIN [Concomitant]
  10. DIOVAN [Concomitant]
  11. PARIET [Concomitant]
     Indication: ABDOMINAL DISCOMFORT
  12. LIVALO [Concomitant]
  13. EPADEL S [Concomitant]
  14. PURSENNID (SENNA) [Concomitant]
  15. MARZULENE [Concomitant]
     Indication: ABDOMINAL DISCOMFORT

REACTIONS (1)
  - Blood pressure increased [Recovered/Resolved]
